FAERS Safety Report 7370429-0 (Version None)
Quarter: 2011Q1

REPORT INFORMATION
  Report Type: 
  Country: None (occurrence: None)
  Receive Date: 20110323
  Receipt Date: 20110226
  Transmission Date: 20110831
  Serious: No
  Sender: FDA-Public Use
  Company Number: US-BAYER-2011-019085

PATIENT
  Sex: Female
  Weight: 68 kg

DRUGS (2)
  1. CONTRACEPTIVES NOS [Concomitant]
     Dosage: UNK
  2. ALEVE (CAPLET) [Suspect]
     Indication: HEADACHE
     Dosage: 8 DF, UNK
     Route: 048
     Dates: start: 20110101

REACTIONS (3)
  - NO ADVERSE EVENT [None]
  - FATIGUE [None]
  - HEART RATE DECREASED [None]
